FAERS Safety Report 25647795 (Version 2)
Quarter: 2025Q3

REPORT INFORMATION
  Report Type: Report from Study
  Country: GB (occurrence: GB)
  Receive Date: 20250806
  Receipt Date: 20250808
  Transmission Date: 20251021
  Serious: Yes (Death)
  Sender: IPSEN BIOPHARMACEUTICALS, INC.
  Company Number: GB-IPSEN Group, Research and Development-2025-19174

PATIENT
  Age: 55 Year
  Sex: Male

DRUGS (1)
  1. LANREOTIDE ACETATE [Suspect]
     Active Substance: LANREOTIDE ACETATE
     Indication: Neuroendocrine carcinoma
     Dosage: 120MG/0.5ML

REACTIONS (2)
  - Death [Fatal]
  - Off label use [Unknown]
